FAERS Safety Report 7129036-7 (Version None)
Quarter: 2010Q4

REPORT INFORMATION
  Report Type: 
  Country: None (occurrence: None)
  Receive Date: 20101116
  Receipt Date: 20101109
  Transmission Date: 20110411
  Serious: Yes (Other)
  Sender: FDA-Public Use
  Company Number: CRC-10-157

PATIENT
  Sex: Male
  Weight: 76.6579 kg

DRUGS (3)
  1. CARBIDOPA + LEVODOPA [Suspect]
     Indication: RESTLESS LEGS SYNDROME
     Dosage: 1.5 TABLETS BEFORE BED
     Dates: start: 20100903, end: 20100904
  2. PLENDIL [Concomitant]
  3. NIACIN [Concomitant]

REACTIONS (5)
  - ERYTHEMA [None]
  - PRURITUS [None]
  - SKIN BURNING SENSATION [None]
  - SKIN DISORDER [None]
  - SKIN IRRITATION [None]
